FAERS Safety Report 23947643 (Version 1)
Quarter: 2024Q2

REPORT INFORMATION
  Report Type: Spontaneous
  Country: JP (occurrence: JP)
  Receive Date: 20240606
  Receipt Date: 20240606
  Transmission Date: 20240716
  Serious: Yes (Death, Other)
  Sender: FDA-Public Use
  Company Number: JP-TAKEDA-2024TJP007918

PATIENT
  Sex: Male

DRUGS (1)
  1. LEUPLIN [Suspect]
     Active Substance: LEUPROLIDE ACETATE
     Indication: Product used for unknown indication
     Dosage: UNK?LEUPLIN FOR INJECTION 3.75 MG
     Route: 050

REACTIONS (4)
  - Death [Fatal]
  - Bedridden [Unknown]
  - Arthralgia [Unknown]
  - Condition aggravated [Unknown]
